FAERS Safety Report 25565127 (Version 1)
Quarter: 2025Q3

REPORT INFORMATION
  Report Type: Spontaneous
  Country: US (occurrence: None)
  Receive Date: 20250715
  Receipt Date: 20250715
  Transmission Date: 20251021
  Serious: Yes (Hospitalization)
  Sender: FDA-CTU
  Company Number: None

PATIENT
  Sex: Female

DRUGS (4)
  1. WINREVAIR [Suspect]
     Active Substance: SOTATERCEPT-CSRK
     Indication: Pulmonary hypertension
     Route: 058
     Dates: start: 20240501
  2. SILDENAFIL CITRATE [Suspect]
     Active Substance: SILDENAFIL CITRATE
  3. STERILE DILUENT FOR REMODULIN [Suspect]
     Active Substance: WATER
  4. REMODULIN [Suspect]
     Active Substance: TREPROSTINIL

REACTIONS (1)
  - Hospitalisation [None]
